FAERS Safety Report 4964110-2 (Version None)
Quarter: 2006Q1

REPORT INFORMATION
  Report Type: 
  Country: None (occurrence: None)
  Receive Date: 20060330
  Receipt Date: 20060309
  Transmission Date: 20060701
  Serious: Yes (Other)
  Sender: FDA-Public Use
  Company Number: US200603002653

PATIENT
  Age: 59 Year
  Sex: Female

DRUGS (2)
  1. FORTEO [Suspect]
     Indication: OSTEOPOROSIS
     Dates: start: 20050801
  2. FORTEO [Concomitant]

REACTIONS (6)
  - CONDITION AGGRAVATED [None]
  - IMPAIRED HEALING [None]
  - LIMB INJURY [None]
  - PHARMACEUTICAL PRODUCT COMPLAINT [None]
  - SCOLIOSIS [None]
  - WOUND [None]
